FAERS Safety Report 20938372 (Version 3)
Quarter: 2022Q2

REPORT INFORMATION
  Report Type: Report from Study
  Country: FR (occurrence: None)
  Receive Date: 20220609
  Receipt Date: 20220617
  Transmission Date: 20220721
  Serious: Yes (Death, Life-Threatening)
  Sender: FDA-Public Use
  Company Number: 2022A209645

PATIENT
  Age: 79 Year
  Sex: Male
  Weight: 70 kg

DRUGS (12)
  1. EVUSHELD [Suspect]
     Active Substance: CILGAVIMAB\TIXAGEVIMAB
     Indication: COVID-19 prophylaxis
     Route: 030
     Dates: start: 20220331, end: 20220331
  2. JANUVIA [Concomitant]
     Active Substance: SITAGLIPTIN PHOSPHATE
     Route: 065
  3. PANTOPRAZOLE [Concomitant]
     Active Substance: PANTOPRAZOLE
     Dosage: 40 MG ONCE A DAY IN THE EVENING
     Route: 065
  4. SALAZOPYRINE [Concomitant]
     Active Substance: SULFASALAZINE
     Dosage: 500 MG ONE MORNING AND ONE EVENING
     Route: 065
  5. CELEBREX [Concomitant]
     Active Substance: CELECOXIB
     Dosage: 200MG ONE MORNING AND ONE EVENING
     Route: 065
  6. ALPHA 1 [Concomitant]
     Dosage: 1 MICROGRAM ONE PER DAY
     Route: 065
  7. ALDACTAZINE [Concomitant]
     Active Substance: ALTHIAZIDE\SPIRONOLACTONE
     Dosage: ? TABLET IN THE MORNING
     Route: 065
  8. BISOPROLOL [Concomitant]
     Active Substance: BISOPROLOL
     Dosage: 7.5MG ONE IN THE MORNING
     Route: 065
  9. RILMENIDINE [Concomitant]
     Active Substance: RILMENIDINE
     Dosage: 1 MG ONE MORNING AND ONE EVENING
     Route: 065
  10. ELIQUIS [Concomitant]
     Active Substance: APIXABAN
     Dosage: 2.5 MG 1.0.1, ONE MORNING AND ONE EVENING
     Route: 065
  11. DOLIPRANE [Concomitant]
     Active Substance: ACETAMINOPHEN
     Dosage: 2.5 MG 1.0.1, ONE MORNING AND ONE EVENING
     Route: 065
  12. LEVOTHYROXINE [Concomitant]
     Active Substance: LEVOTHYROXINE
     Route: 065

REACTIONS (3)
  - Cardio-respiratory arrest [Fatal]
  - Tremor [Fatal]
  - General physical health deterioration [Fatal]

NARRATIVE: CASE EVENT DATE: 20220501
